FAERS Safety Report 9556466 (Version 1)
Quarter: 2013Q3

REPORT INFORMATION
  Report Type: Spontaneous
  Country: US (occurrence: None)
  Receive Date: 20130815
  Receipt Date: 20130815
  Transmission Date: 20140515
  Serious: Yes (Other)
  Sender: FDA-Public Use
  Company Number: ADR-2012-01904

PATIENT
  Age: 62 Year
  Sex: Male

DRUGS (1)
  1. BACLOFEN INTRATHECAL (BACLOFEN INJECTION) [Suspect]
     Indication: MULTIPLE SCLEROSIS

REACTIONS (5)
  - Drug withdrawal syndrome [None]
  - Infection [None]
  - Musculoskeletal stiffness [None]
  - Muscle spasms [None]
  - Malaise [None]
